FAERS Safety Report 13030566 (Version 1)
Quarter: 2016Q4

REPORT INFORMATION
  Report Type: Spontaneous
  Country: US (occurrence: US)
  Receive Date: 20161215
  Receipt Date: 20161215
  Transmission Date: 20170207
  Serious: Yes (Other)
  Sender: FDA-Public Use
  Company Number: US-PFIZER INC-2016574790

PATIENT
  Age: 53 Year
  Sex: Female
  Weight: 82 kg

DRUGS (1)
  1. PREMPRO [Suspect]
     Active Substance: ESTROGENS, CONJUGATED\MEDROXYPROGESTERONE ACETATE
     Indication: HOT FLUSH
     Dosage: 0.3 MG, 1X/DAY
     Route: 048
     Dates: start: 2016, end: 2016

REACTIONS (2)
  - Intentional product misuse [Not Recovered/Not Resolved]
  - Postmenopausal haemorrhage [Unknown]

NARRATIVE: CASE EVENT DATE: 2016
